FAERS Safety Report 4503518-6 (Version None)
Quarter: 2004Q4

REPORT INFORMATION
  Report Type: 
  Country: None (occurrence: None)
  Receive Date: 20041115
  Receipt Date: 20041104
  Transmission Date: 20050328
  Serious: Yes (Hospitalization)
  Sender: FDA-Public Use
  Company Number: STA-AE-04-039

PATIENT
  Age: 30 Year
  Sex: Male

DRUGS (10)
  1. NAPROXEN [Suspect]
     Indication: DRUG ABUSER
     Dosage: 500MG 1 TIME ONLY, ORAL
     Route: 048
  2. LOFEXIDINE [Concomitant]
  3. METOCLOPRAMIDE [Concomitant]
  4. HYDROXYZINE [Concomitant]
  5. ACETAMINOPHEN [Concomitant]
  6. DIAZEPAM [Concomitant]
  7. PROMAZINE HCL [Concomitant]
  8. DOXEPIN HCL [Concomitant]
  9. POTASSIUM CHLORIDE [Concomitant]
  10. MAGNESIUM HYDROXIDE TAB [Concomitant]

REACTIONS (13)
  - BALANITIS [None]
  - DERMATITIS BULLOUS [None]
  - DRUG ERUPTION [None]
  - ERYTHEMA [None]
  - GINGIVAL DISORDER [None]
  - LIP HAEMORRHAGE [None]
  - MUCOSAL EROSION [None]
  - OEDEMA [None]
  - PRURITUS [None]
  - SCROTAL SWELLING [None]
  - SCROTAL ULCER [None]
  - SKIN LESION [None]
  - SWELLING FACE [None]
